FAERS Safety Report 15431938 (Version 1)
Quarter: 2018Q3

REPORT INFORMATION
  Report Type: Spontaneous
  Country: NL (occurrence: NL)
  Receive Date: 20180926
  Receipt Date: 20180926
  Transmission Date: 20181010
  Serious: Yes (Disabling)
  Sender: FDA-Public Use
  Company Number: NL-PFIZER INC-2018384228

PATIENT
  Age: 60 Year
  Sex: Male
  Weight: 83 kg

DRUGS (13)
  1. MAGNESIUMHYDROXIDE [Concomitant]
     Dosage: 1?2 DF (724), 3X/DAY
  2. PREDNISON [Concomitant]
     Active Substance: PREDNISONE
     Dosage: 5 MG, 1X/DAY
     Dates: start: 20180605
  3. HYDROCHLOORTHIAZIDE [Concomitant]
     Active Substance: HYDROCHLOROTHIAZIDE
     Dosage: 12.5 MG, 1X/DAY
     Route: 050
     Dates: start: 20180529
  4. ARAVA [Suspect]
     Active Substance: LEFLUNOMIDE
     Dosage: 10 MG, 1X/DAY
     Route: 050
     Dates: start: 20161024, end: 20180610
  5. PARACETAMOL [Concomitant]
     Active Substance: ACETAMINOPHEN
     Dosage: 1000 MG, 4X/DAY
     Route: 050
  6. PANTOPRAZOLE [Concomitant]
     Active Substance: PANTOPRAZOLE
     Dosage: 40 MG, 1X/DAY
     Route: 050
     Dates: start: 20180605
  7. NATRIUMRISEDRONAAT [Concomitant]
     Dosage: 35 MG, WEEKLY
     Route: 050
     Dates: start: 20180531, end: 20180704
  8. METOPROLOLSUCCINAAT [Concomitant]
     Active Substance: METOPROLOL SUCCINATE
     Dosage: 200 MG, 1X/DAY
     Dates: start: 20180529
  9. LEFLUNOMIDE. [Concomitant]
     Active Substance: LEFLUNOMIDE
     Dosage: 20 MG, 1X/DAY
     Route: 050
     Dates: start: 20180531, end: 20180630
  10. AMOXICILLINE [AMOXICILLIN] [Concomitant]
     Dosage: 500 MG, 3X/DAY
  11. BISACODYL. [Concomitant]
     Active Substance: BISACODYL
     Dosage: 10 MG, 1X/DAY
     Route: 050
  12. XELJANZ [Suspect]
     Active Substance: TOFACITINIB CITRATE
     Indication: RHEUMATOID ARTHRITIS
     Dosage: 5 MG, 1X/DAY
     Route: 048
     Dates: start: 20180319
  13. FOLIUMZUUR [Concomitant]
     Active Substance: FOLIC ACID
     Dosage: 2.5 MG, 1X/DAY (6 DAYS PER WEEK)

REACTIONS (5)
  - Ischaemia [Not Recovered/Not Resolved]
  - Oral candidiasis [Not Recovered/Not Resolved]
  - Meningomyelitis herpes [Not Recovered/Not Resolved]
  - Vasculitis [Not Recovered/Not Resolved]
  - Paraplegia [Not Recovered/Not Resolved]

NARRATIVE: CASE EVENT DATE: 20180610
